FAERS Safety Report 23277479 (Version 1)
Quarter: 2023Q4

REPORT INFORMATION
  Report Type: Spontaneous
  Country: IT (occurrence: IT)
  Receive Date: 20231208
  Receipt Date: 20231208
  Transmission Date: 20240109
  Serious: Yes (Other)
  Sender: FDA-Public Use
  Company Number: IT-ROCHE-3465055

PATIENT
  Age: 74 Year
  Sex: Female
  Weight: 50 kg

DRUGS (8)
  1. OXALIPLATIN [Suspect]
     Active Substance: OXALIPLATIN
     Indication: Diffuse large B-cell lymphoma
     Route: 065
     Dates: start: 20230818, end: 20230825
  2. GEMCITABINE [Suspect]
     Active Substance: GEMCITABINE
     Indication: Diffuse large B-cell lymphoma
     Dosage: ROA - UNKNOWN
     Dates: start: 20230818, end: 20230825
  3. VINCRISTINE [Suspect]
     Active Substance: VINCRISTINE
     Indication: Diffuse large B-cell lymphoma
     Dosage: ROA - UNKNOWN
     Dates: start: 20221212, end: 20230328
  4. CYCLOPHOSPHAMIDE [Suspect]
     Active Substance: CYCLOPHOSPHAMIDE
     Indication: Diffuse large B-cell lymphoma
     Dosage: ROA - UNKNOWN
     Dates: start: 20221212, end: 20230328
  5. RITUXIMAB [Suspect]
     Active Substance: RITUXIMAB
     Indication: Diffuse large B-cell lymphoma
     Dosage: ROA - UNKNOWN
     Dates: start: 20221212, end: 20230328
  6. RITUXIMAB [Suspect]
     Active Substance: RITUXIMAB
     Dosage: ROA - UNKNOWN
     Dates: start: 20230818, end: 20230825
  7. DOXORUBICIN [Suspect]
     Active Substance: DOXORUBICIN
     Indication: Diffuse large B-cell lymphoma
     Dosage: ROA - UNKNOWN
     Dates: start: 20221212, end: 20230328
  8. PREDNISONE [Suspect]
     Active Substance: PREDNISONE
     Indication: Diffuse large B-cell lymphoma
     Dosage: ROA - UNKNOWN
     Dates: start: 20221212, end: 20230328

REACTIONS (2)
  - Deep vein thrombosis [Unknown]
  - Disease progression [Unknown]
